FAERS Safety Report 7924229-0 (Version None)
Quarter: 2011Q4

REPORT INFORMATION
  Report Type: 
  Country: None (occurrence: None)
  Receive Date: 20111117
  Receipt Date: 20110321
  Transmission Date: 20120403
  Serious: No
  Sender: FDA-Public Use
  Company Number: US-AMGEN-USASP2011011940

PATIENT
  Age: 55 Year
  Sex: Female

DRUGS (1)
  1. ENBREL [Suspect]
     Indication: PSORIATIC ARTHROPATHY
     Dosage: 25 MG, 2 TIMES/WK
     Dates: start: 20050101

REACTIONS (7)
  - SLEEP DISORDER [None]
  - ROAD TRAFFIC ACCIDENT [None]
  - PAIN [None]
  - NECK PAIN [None]
  - BONE PAIN [None]
  - INJECTION SITE PAIN [None]
  - BACK PAIN [None]
